FAERS Safety Report 6943902-4 (Version None)
Quarter: 2010Q3

REPORT INFORMATION
  Report Type: 
  Country: None (occurrence: None)
  Receive Date: 20100826
  Receipt Date: 20100818
  Transmission Date: 20110219
  Serious: Yes (Other)
  Sender: FDA-Public Use
  Company Number: A0877741A

PATIENT
  Age: 47 Year
  Sex: Female
  Weight: 69 kg

DRUGS (2)
  1. FLOLAN [Suspect]
     Indication: PRODUCT USED FOR UNKNOWN INDICATION
     Dates: start: 20040201
  2. FLOLAN [Suspect]

REACTIONS (1)
  - THROMBOSIS [None]
